FAERS Safety Report 8858926 (Version 10)
Quarter: 2014Q4

REPORT INFORMATION
  Report Type: Spontaneous
  Country: US (occurrence: US)
  Receive Date: 20121024
  Receipt Date: 20141006
  Transmission Date: 20150529
  Serious: Yes (Hospitalization, Disabling, Other)
  Sender: FDA-Public Use
  Company Number: US-009507513-1210USA008676

PATIENT
  Sex: Female
  Weight: 68.27 kg

DRUGS (8)
  1. VITAMINS (UNSPECIFIED) [Concomitant]
     Active Substance: VITAMINS
     Dosage: ONE DAILY
     Dates: start: 1980
  2. CALCIUM (UNSPECIFIED) [Concomitant]
     Active Substance: CALCIUM
     Dosage: 600 MG, BID
     Dates: start: 1980
  3. ASCORBIC ACID. [Concomitant]
     Active Substance: ASCORBIC ACID
     Dosage: 500 MG, BID
     Dates: start: 1980
  4. VITAMIN D [Concomitant]
     Active Substance: CHOLECALCIFEROL
     Dosage: 1000 IU BID
     Dates: start: 1980
  5. ALENDRONATE SODIUM. [Suspect]
     Active Substance: ALENDRONATE SODIUM
     Dosage: 70 MG, UNK
     Dates: end: 20110726
  6. FOSAMAX [Suspect]
     Active Substance: ALENDRONATE SODIUM
     Indication: OSTEOPENIA
     Dosage: 70 MG, QW
     Route: 048
     Dates: end: 20110917
  7. HORMONES (UNSPECIFIED) [Concomitant]
     Active Substance: UNSPECIFIED INGREDIENT
     Dosage: UNK
     Dates: start: 1985
  8. VITAMIN E [Concomitant]
     Active Substance: .ALPHA.-TOCOPHEROL
     Dosage: 400 IU, BID
     Dates: start: 1980

REACTIONS (36)
  - Femur fracture [Recovered/Resolved]
  - Stress fracture [Not Recovered/Not Resolved]
  - Acute kidney injury [Recovered/Resolved]
  - Hand fracture [Unknown]
  - Hypertonic bladder [Unknown]
  - Low turnover osteopathy [Not Recovered/Not Resolved]
  - Intramedullary rod insertion [Unknown]
  - Hand fracture [Recovered/Resolved]
  - Rheumatoid arthritis [Unknown]
  - Procedural nausea [Recovered/Resolved]
  - Femur fracture [Not Recovered/Not Resolved]
  - Osteoporosis [Not Recovered/Not Resolved]
  - Tonsillectomy [Unknown]
  - Dental prosthesis user [Unknown]
  - Hand fracture [Recovered/Resolved]
  - Vitamin D deficiency [Unknown]
  - Anaemia postoperative [Unknown]
  - Hepatic steatosis [Recovering/Resolving]
  - Concussion [Unknown]
  - Glucose tolerance impaired [Unknown]
  - Nasal congestion [Unknown]
  - Osteoarthritis [Unknown]
  - Hysterectomy [Unknown]
  - Calcium deficiency [Unknown]
  - Arthritis [Unknown]
  - Epstein-Barr virus infection [Unknown]
  - Hepatic function abnormal [Recovering/Resolving]
  - Oropharyngeal pain [Unknown]
  - Transaminases increased [Recovering/Resolving]
  - Tendon injury [Unknown]
  - Hyperglycaemia [Unknown]
  - Breast cyst excision [Unknown]
  - Leukocytosis [Unknown]
  - Vulvovaginal mycotic infection [Unknown]
  - Malnutrition [Unknown]
  - Dyspepsia [Unknown]

NARRATIVE: CASE EVENT DATE: 1995
